FAERS Safety Report 24331782 (Version 4)
Quarter: 2024Q4

REPORT INFORMATION
  Report Type: Spontaneous
  Country: DE (occurrence: DE)
  Receive Date: 20240918
  Receipt Date: 20241105
  Transmission Date: 20250114
  Serious: Yes (Life-Threatening, Hospitalization, Other)
  Sender: SANDOZ
  Company Number: None

PATIENT
  Age: 53 Year
  Sex: Female

DRUGS (29)
  1. CYCLOPHOSPHAMIDE [Suspect]
     Active Substance: CYCLOPHOSPHAMIDE
     Indication: Plasma cell myeloma
     Dosage: 2500 MILLIGRAM/SQ. METER, DAY 1
     Route: 065
  2. CYCLOPHOSPHAMIDE [Suspect]
     Active Substance: CYCLOPHOSPHAMIDE
     Indication: Lymphodepletion
  3. CARFILZOMIB [Suspect]
     Active Substance: CARFILZOMIB
     Dosage: 20 MILLIGRAM/SQ. METER, VIAL- LYOPHILIZED
     Route: 065
  4. CARFILZOMIB [Suspect]
     Active Substance: CARFILZOMIB
     Indication: Plasma cell myeloma refractory
     Dosage: 56 MILLIGRAM/SQ. METER
     Route: 065
  5. CARFILZOMIB [Suspect]
     Active Substance: CARFILZOMIB
     Indication: Plasma cell myeloma
     Dosage: UNK
     Route: 065
  6. CARFILZOMIB [Suspect]
     Active Substance: CARFILZOMIB
     Dosage: UNK
     Route: 065
  7. DEXAMETHASONE [Suspect]
     Active Substance: DEXAMETHASONE
     Indication: Cytokine release syndrome
     Dosage: UNK
     Route: 065
  8. DENOSUMAB [Suspect]
     Active Substance: DENOSUMAB
     Indication: Plasma cell myeloma
     Dosage: 120 MILLIGRAM
     Route: 058
  9. DENOSUMAB [Suspect]
     Active Substance: DENOSUMAB
     Indication: Metastases to bone
  10. ETOPOSIDE [Suspect]
     Active Substance: ETOPOSIDE
     Indication: Plasma cell myeloma refractory
     Dosage: 600 MILLIGRAM/SQ. METER TOTAL , DAY1-3
     Route: 065
  11. ETOPOSIDE [Suspect]
     Active Substance: ETOPOSIDE
     Indication: Plasma cell myeloma
     Dosage: UNK
     Route: 065
  12. ISATUXIMAB [Suspect]
     Active Substance: ISATUXIMAB
     Indication: Plasma cell myeloma
     Dosage: 100 MILLIGRAM
     Route: 065
  13. ISATUXIMAB [Suspect]
     Active Substance: ISATUXIMAB
     Indication: Plasma cell myeloma refractory
     Dosage: 500 MILLIGRAM
     Route: 065
  14. LENALIDOMIDE [Suspect]
     Active Substance: LENALIDOMIDE
     Indication: Plasma cell myeloma
     Dosage: UNK
     Route: 065
  15. MELPHALAN [Suspect]
     Active Substance: MELPHALAN
     Indication: Plasma cell myeloma
     Dosage: 100 MILLIGRAM/SQ. METER, DAY 1-2
     Route: 065
  16. MELPHALAN [Suspect]
     Active Substance: MELPHALAN
     Indication: Plasma cell myeloma refractory
     Dosage: 20 MILLIGRAM/SQ. METER
     Route: 065
  17. FLUDARABINE [Concomitant]
     Active Substance: FLUDARABINE PHOSPHATE
     Indication: Lymphodepletion
     Dosage: UNK
     Route: 065
  18. FLUDARABINE [Concomitant]
     Active Substance: FLUDARABINE PHOSPHATE
     Dosage: UNK
     Route: 065
  19. FLUDARABINE [Concomitant]
     Active Substance: FLUDARABINE PHOSPHATE
     Dosage: UNK
     Route: 065
  20. POSACONAZOLE [Concomitant]
     Active Substance: POSACONAZOLE
     Dosage: 100 MILLIGRAM
     Route: 065
  21. POSACONAZOLE [Concomitant]
     Active Substance: POSACONAZOLE
     Dosage: 100 MILLIGRAM
     Route: 065
  22. POSACONAZOLE [Concomitant]
     Active Substance: POSACONAZOLE
     Indication: Plasma cell myeloma
     Dosage: UNK
     Route: 065
  23. TECLISTAMAB [Concomitant]
     Active Substance: TECLISTAMAB
     Indication: Plasma cell myeloma refractory
     Dosage: 1.5 MILLIGRAM/KILOGRAM
     Route: 058
  24. TOCILIZUMAB [Concomitant]
     Active Substance: TOCILIZUMAB
     Indication: Cytokine release syndrome
     Dosage: UNK (RECEIVED FOR 3 DAYS)
     Route: 065
  25. TOCILIZUMAB [Concomitant]
     Active Substance: TOCILIZUMAB
     Dosage: UNK (RECEIVED FOR 3 DAYS)
     Route: 065
  26. TOCILIZUMAB [Concomitant]
     Active Substance: TOCILIZUMAB
     Dosage: UNK (RECEIVED FOR 3 DAYS)
     Route: 065
  27. VALACYCLOVIR [Concomitant]
     Active Substance: VALACYCLOVIR HYDROCHLORIDE
     Dosage: 500 MILLIGRAM
     Route: 065
  28. VALACYCLOVIR [Concomitant]
     Active Substance: VALACYCLOVIR HYDROCHLORIDE
     Dosage: 500 MILLIGRAM
     Route: 065
  29. VALACYCLOVIR [Concomitant]
     Active Substance: VALACYCLOVIR HYDROCHLORIDE
     Indication: Plasma cell myeloma
     Dosage: UNK
     Route: 065

REACTIONS (7)
  - Cytokine release syndrome [Unknown]
  - Plasma cell myeloma refractory [Unknown]
  - Thrombotic microangiopathy [Unknown]
  - Hypogammaglobulinaemia [Unknown]
  - Renal failure [Unknown]
  - Drug ineffective [Unknown]
  - Off label use [Unknown]
